FAERS Safety Report 18874316 (Version 6)
Quarter: 2021Q2

REPORT INFORMATION
  Report Type: Report from Study
  Country: US (occurrence: AR)
  Receive Date: 20210210
  Receipt Date: 20210527
  Transmission Date: 20210717
  Serious: Yes (Hospitalization)
  Sender: FDA-Public Use
  Company Number: AR-ELI_LILLY_AND_COMPANY-AR202101010858

PATIENT
  Age: 54 Year
  Sex: Male
  Weight: 64 kg

DRUGS (12)
  1. PREGABALIN. [Concomitant]
     Active Substance: PREGABALIN
     Indication: PRODUCT USED FOR UNKNOWN INDICATION
     Dosage: 25 MG, UNKNOWN
     Route: 065
     Dates: start: 20200731
  2. PEMETREXED. [Suspect]
     Active Substance: PEMETREXED
     Indication: NON-SMALL CELL LUNG CANCER METASTATIC
     Dosage: 500 MG/M2, CYCLICAL (Q3W)
     Route: 042
     Dates: start: 20200402, end: 20201210
  3. PEMETREXED. [Suspect]
     Active Substance: PEMETREXED
     Dosage: 500 MG/M2, CYCLICAL
     Route: 042
     Dates: start: 20210108, end: 20210108
  4. PEMBROLIZUMAB. [Concomitant]
     Active Substance: PEMBROLIZUMAB
     Indication: NON-SMALL CELL LUNG CANCER METASTATIC
     Dosage: 200 MG, CYCLICAL (Q3W)
     Route: 042
     Dates: start: 20200402, end: 20201210
  5. CARBOPLATIN. [Concomitant]
     Active Substance: CARBOPLATIN
     Indication: NON-SMALL CELL LUNG CANCER METASTATIC
     Dosage: AUC 5 MG/ML/MIN, CYCLICAL (Q3W)
     Route: 042
     Dates: start: 20200402, end: 20200603
  6. OMEPRAZOLE. [Concomitant]
     Active Substance: OMEPRAZOLE
     Indication: PRODUCT USED FOR UNKNOWN INDICATION
     Dosage: 20 MG, UNKNOWN
     Route: 065
     Dates: start: 20200731
  7. PEMBROLIZUMAB. [Concomitant]
     Active Substance: PEMBROLIZUMAB
     Dosage: 200 MG, CYCLICAL (Q3W)
     Route: 042
     Dates: start: 20210108, end: 20210108
  8. PEMBROLIZUMAB. [Concomitant]
     Active Substance: PEMBROLIZUMAB
     Dosage: 200 MG, CYCLICAL (Q3W)
     Route: 042
     Dates: start: 20210205, end: 20210322
  9. ACETAMINOPHEN. [Concomitant]
     Active Substance: ACETAMINOPHEN
     Indication: PRODUCT USED FOR UNKNOWN INDICATION
     Dosage: 500 MG, UNKNOWN
     Route: 065
     Dates: start: 20200731
  10. BUPRENORPHINE. [Concomitant]
     Active Substance: BUPRENORPHINE
     Indication: PRODUCT USED FOR UNKNOWN INDICATION
     Dosage: 5 UG, UNKNOWN
     Route: 003
     Dates: start: 20200731
  11. ENOXAPARIN SODIUM. [Concomitant]
     Active Substance: ENOXAPARIN SODIUM
     Indication: PRODUCT USED FOR UNKNOWN INDICATION
     Dosage: 60 MG, UNKNOWN
     Route: 058
     Dates: start: 201911
  12. FOLIC ACID. [Concomitant]
     Active Substance: FOLIC ACID
     Indication: PRODUCT USED FOR UNKNOWN INDICATION
     Dosage: 10 MG, UNKNOWN
     Route: 065
     Dates: start: 20200326

REACTIONS (1)
  - Pseudocellulitis [Recovered/Resolved]

NARRATIVE: CASE EVENT DATE: 20210120
